FAERS Safety Report 13495786 (Version 3)
Quarter: 2017Q2

REPORT INFORMATION
  Report Type: Spontaneous
  Country: AU (occurrence: AU)
  Receive Date: 20170428
  Receipt Date: 20170512
  Transmission Date: 20170830
  Serious: Yes (Other)
  Sender: FDA-Public Use
  Company Number: AU-009507513-1704AUS014063

PATIENT
  Age: 18 Year
  Sex: Female
  Weight: 386 kg

DRUGS (2)
  1. IMPLANON [Suspect]
     Active Substance: ETONOGESTREL
     Indication: CONTRACEPTION
     Dosage: 1 DF, EVERY 3 YEARS
     Route: 058
     Dates: start: 20170210, end: 20170420
  2. BICILLIN L-A [Concomitant]
     Active Substance: PENICILLIN G BENZATHINE
     Indication: PROPHYLAXIS
     Dosage: 900 MG, MONTHLY
     Route: 030

REACTIONS (2)
  - Device deployment issue [Recovered/Resolved]
  - Cellulitis [Recovered/Resolved]

NARRATIVE: CASE EVENT DATE: 20170210
